FAERS Safety Report 13871473 (Version 1)
Quarter: 2017Q3

REPORT INFORMATION
  Report Type: Spontaneous
  Country: US (occurrence: US)
  Receive Date: 20170816
  Receipt Date: 20170816
  Transmission Date: 20171127
  Serious: No
  Sender: FDA-Public Use
  Company Number: US-ALLERGAN-1677556US

PATIENT
  Sex: Male
  Weight: 62.31 kg

DRUGS (31)
  1. METFORMIN [Concomitant]
     Active Substance: METFORMIN HYDROCHLORIDE
  2. CITALOPRAM HYDROBROMIDE UNK [Suspect]
     Active Substance: CITALOPRAM HYDROBROMIDE
     Indication: PRODUCT USED FOR UNKNOWN INDICATION
  3. ADVAIR HFA [Concomitant]
     Active Substance: FLUTICASONE PROPIONATE\SALMETEROL XINAFOATE
  4. CLOPIDOGREL [Concomitant]
     Active Substance: CLOPIDOGREL BISULFATE
  5. COLCHICINE. [Concomitant]
     Active Substance: COLCHICINE
  6. PROMETHAZINE DM [Concomitant]
     Active Substance: DEXTROMETHORPHAN HYDROBROMIDE\PROMETHAZINE HYDROCHLORIDE
  7. ALLOPURINOL. [Concomitant]
     Active Substance: ALLOPURINOL
  8. CARISOPRODOL. [Concomitant]
     Active Substance: CARISOPRODOL
  9. CARVEDILOL. [Concomitant]
     Active Substance: CARVEDILOL
  10. COMBIVENT RESPIMAT [Concomitant]
     Active Substance: ALBUTEROL SULFATE\IPRATROPIUM BROMIDE
  11. GABAPENTIN. [Concomitant]
     Active Substance: GABAPENTIN
  12. ISRADIPINE. [Concomitant]
     Active Substance: ISRADIPINE
  13. MEMANTINE. [Concomitant]
     Active Substance: MEMANTINE
  14. SPIRIVA [Concomitant]
     Active Substance: TIOTROPIUM BROMIDE MONOHYDRATE
  15. ACIPHEX [Concomitant]
     Active Substance: RABEPRAZOLE SODIUM
  16. LISINOPRIL. [Concomitant]
     Active Substance: LISINOPRIL
  17. OXYCODONE [Concomitant]
     Active Substance: OXYCODONE
  18. VIAGRA [Concomitant]
     Active Substance: SILDENAFIL CITRATE
  19. AMMONIUM LACTATE. [Concomitant]
     Active Substance: AMMONIUM LACTATE
  20. CHANTIX [Concomitant]
     Active Substance: VARENICLINE TARTRATE
  21. FLUTICASONE. [Concomitant]
     Active Substance: FLUTICASONE
  22. LOVAZA [Concomitant]
     Active Substance: OMEGA-3-ACID ETHYL ESTERS
  23. NAMENDA [Concomitant]
     Active Substance: MEMANTINE HYDROCHLORIDE
  24. NIACIN. [Concomitant]
     Active Substance: NIACIN
  25. NORVASC [Concomitant]
     Active Substance: AMLODIPINE BESYLATE
  26. PRAVASTATIN. [Concomitant]
     Active Substance: PRAVASTATIN
  27. CLONAZEPAM. [Concomitant]
     Active Substance: CLONAZEPAM
  28. LISINOPRIL + HIDROCLOROTIAZIDA [Concomitant]
     Active Substance: HYDROCHLOROTHIAZIDE\LISINOPRIL
  29. HYDROCHLOROTHIAZIDE. [Concomitant]
     Active Substance: HYDROCHLOROTHIAZIDE
  30. VENTOLIN HFA [Concomitant]
     Active Substance: ALBUTEROL SULFATE
  31. PROTONIX [Concomitant]
     Active Substance: PANTOPRAZOLE SODIUM

REACTIONS (1)
  - Mental status changes [Unknown]
